FAERS Safety Report 4785339-2 (Version None)
Quarter: 2005Q3

REPORT INFORMATION
  Report Type: 
  Country: None (occurrence: None)
  Receive Date: 20050914
  Receipt Date: 20041011
  Transmission Date: 20060218
  Serious: Yes (Hospitalization)
  Sender: FDA-Public Use
  Company Number: 163-20785-04050589

PATIENT
  Age: 58 Year
  Sex: Female

DRUGS (17)
  1. THALOMID [Suspect]
     Indication: MULTIPLE MYELOMA
     Dosage: 200-300MG, QD, ORAL; SEE IMAGE
     Route: 048
     Dates: start: 20031223, end: 20040516
  2. THALOMID [Suspect]
     Indication: MULTIPLE MYELOMA
     Dosage: 200-300MG, QD, ORAL; SEE IMAGE
     Route: 048
     Dates: start: 20040926, end: 20041007
  3. MELPHALAN (MELPHALAN) [Suspect]
     Indication: MULTIPLE MYELOMA
     Dosage: 250 MG, DAILY, INTRAVENOUS
     Route: 042
     Dates: start: 20040427, end: 20040427
  4. CYTOXAN [Suspect]
     Indication: MULTIPLE MYELOMA
     Dosage: 788 MG, INTRAVENOUS
     Route: 042
     Dates: start: 20040112, end: 20040115
  5. DEXAMETHASONE [Suspect]
     Indication: MULTIPLE MYELOMA
     Dosage: 40 MG, ORAL
     Route: 048
     Dates: start: 20040112, end: 20040115
  6. ETOPOSIDE [Suspect]
     Indication: MULTIPLE MYELOMA
     Dosage: 78.8 MG, INTRAVENOUS
     Route: 042
     Dates: start: 20040112, end: 20040115
  7. CEFEPIME (CEFEPIME) (INJECTION FOR INFUSION) [Concomitant]
  8. DIFLUCAN [Concomitant]
  9. ACYCLOVIR [Concomitant]
  10. TEQUIN [Concomitant]
  11. PROTONIX [Concomitant]
  12. FOLIC ACID [Concomitant]
  13. LEXAPRO [Concomitant]
  14. OXYCONTIN [Concomitant]
  15. ATIVAN [Concomitant]
  16. REGLAN (METOCLOPROMIDE) [Concomitant]
  17. BACTRIM DS [Concomitant]

REACTIONS (16)
  - ALOPECIA [None]
  - DEHYDRATION [None]
  - DIARRHOEA [None]
  - DYSPNOEA [None]
  - FEBRILE NEUTROPENIA [None]
  - HYPERKALAEMIA [None]
  - HYPERSENSITIVITY [None]
  - INFECTION [None]
  - MUCOSAL INFLAMMATION [None]
  - NAUSEA [None]
  - PYREXIA [None]
  - RASH PRURITIC [None]
  - RENAL FAILURE ACUTE [None]
  - STAPHYLOCOCCAL BACTERAEMIA [None]
  - URINARY TRACT INFECTION [None]
  - VOMITING [None]
